FAERS Safety Report 5381445-2 (Version None)
Quarter: 2007Q2

REPORT INFORMATION
  Report Type: 
  Country: None (occurrence: None)
  Receive Date: 20070629
  Receipt Date: 20070424
  Transmission Date: 20071010
  Serious: Yes (Hospitalization)
  Sender: FDA-Public Use
  Company Number: US200704005749

PATIENT
  Age: 76 Year
  Sex: Female

DRUGS (7)
  1. HUMALOG PEN [Suspect]
     Indication: DIABETES MELLITUS
     Dates: start: 20060101
  2. HUMULIN N [Suspect]
     Indication: DIABETES MELLITUS
  3. HUMALOG PEN [Concomitant]
  4. HUMALOG PEN [Concomitant]
  5. HUMULIN N PEN (HUMULIN N PEN) PEN, DISPOSABLE [Concomitant]
  6. LANTUS [Concomitant]
  7. MACROBID [Concomitant]

REACTIONS (7)
  - ANAEMIA [None]
  - DIARRHOEA [None]
  - DRUG HYPERSENSITIVITY [None]
  - GOUT [None]
  - LIP SWELLING [None]
  - PAIN [None]
  - URINARY TRACT INFECTION [None]
